FAERS Safety Report 5003788-4 (Version None)
Quarter: 2006Q2

REPORT INFORMATION
  Report Type: 
  Country: None (occurrence: None)
  Receive Date: 20060511
  Receipt Date: 20060503
  Transmission Date: 20061013
  Serious: Yes (Hospitalization)
  Sender: FDA-Public Use
  Company Number: 2006ADE/CIPRO-007

PATIENT
  Age: 58 Year
  Sex: Female

DRUGS (4)
  1. CIPROFLOXACIN [Suspect]
     Dosage: 1000MG, DAILY, ORAL
     Route: 048
  2. LERCANIDIPINE [Concomitant]
  3. IRBESARTAN [Concomitant]
  4. ACETHYLICACID [Concomitant]

REACTIONS (2)
  - DYSPNOEA [None]
  - LARYNGEAL OEDEMA [None]
